FAERS Safety Report 13919263 (Version 1)
Quarter: 2017Q3

REPORT INFORMATION
  Report Type: Spontaneous
  Country: US (occurrence: US)
  Receive Date: 20170830
  Receipt Date: 20170830
  Transmission Date: 20171127
  Serious: Yes (Other)
  Sender: FDA-Public Use
  Company Number: US-RECORDATI RARE DISEASES-US-R13005-17-00179

PATIENT
  Age: 69 Year
  Sex: Male

DRUGS (4)
  1. VINCRISTINE [Suspect]
     Active Substance: VINCRISTINE
     Indication: HODGKIN^S DISEASE NODULAR SCLEROSIS STAGE I
     Route: 065
  2. PROCARBAZINE [Suspect]
     Active Substance: PROCARBAZINE
     Indication: HODGKIN^S DISEASE NODULAR SCLEROSIS STAGE I
     Route: 065
  3. MECHLORETHAMINE [Suspect]
     Active Substance: MECHLORETHAMINE
     Indication: HODGKIN^S DISEASE NODULAR SCLEROSIS STAGE I
     Route: 065
  4. PREDNISONE. [Suspect]
     Active Substance: PREDNISONE
     Indication: HODGKIN^S DISEASE NODULAR SCLEROSIS STAGE I
     Route: 065

REACTIONS (3)
  - Progressive multifocal leukoencephalopathy [Unknown]
  - Lymphopenia [Unknown]
  - Off label use [Unknown]
